FAERS Safety Report 8249309-4 (Version None)
Quarter: 2012Q1

REPORT INFORMATION
  Report Type: 
  Country: None (occurrence: None)
  Receive Date: 20120327
  Receipt Date: 20120314
  Transmission Date: 20120608
  Serious: Yes (Death, Life-Threatening, Hospitalization, Other)
  Sender: FDA-Public Use
  Company Number: 2008AL010343

PATIENT
  Age: 63 Year
  Sex: Male
  Weight: 92.9874 kg

DRUGS (13)
  1. AXID [Concomitant]
  2. CARTIA XT [Concomitant]
  3. ACIPHEX [Concomitant]
  4. ZOLOFT [Concomitant]
  5. POTASSIUM [Concomitant]
  6. LASIX [Concomitant]
  7. COREG [Concomitant]
  8. DIGOXIN [Suspect]
     Indication: ATRIAL FIBRILLATION
     Dosage: 0.25 MG;PO
     Route: 048
     Dates: start: 19920101, end: 20060818
  9. DIGOXIN [Suspect]
     Indication: HEART RATE IRREGULAR
     Dosage: 0.25 MG;PO
     Route: 048
     Dates: start: 19920101, end: 20060818
  10. CIPROFLOXACIN [Concomitant]
  11. HYTRIN [Concomitant]
  12. COUMADIN [Concomitant]
  13. AMOXICILLIN [Concomitant]

REACTIONS (48)
  - ACTIVITIES OF DAILY LIVING IMPAIRED [None]
  - CARDIOMYOPATHY [None]
  - VENTRICULAR HYPOKINESIA [None]
  - AORTIC DILATATION [None]
  - RESPIRATORY FAILURE [None]
  - LEFT VENTRICULAR HYPERTROPHY [None]
  - CARDIAC MURMUR [None]
  - BLOOD BILIRUBIN UNCONJUGATED INCREASED [None]
  - BLOOD PRESSURE FLUCTUATION [None]
  - VENTRICULAR FIBRILLATION [None]
  - HYPOXIC-ISCHAEMIC ENCEPHALOPATHY [None]
  - ARRHYTHMIA [None]
  - ECONOMIC PROBLEM [None]
  - OEDEMA PERIPHERAL [None]
  - PULMONARY CONGESTION [None]
  - ELECTROCARDIOGRAM QRS COMPLEX ABNORMAL [None]
  - MYOCARDIAL ISCHAEMIA [None]
  - DIZZINESS [None]
  - MULTIPLE INJURIES [None]
  - MUSCLE SPASMS [None]
  - DYSPNOEA PAROXYSMAL NOCTURNAL [None]
  - BLOOD BILIRUBIN INCREASED [None]
  - VENTRICULAR EXTRASYSTOLES [None]
  - HYPOKALAEMIA [None]
  - CARDIOMEGALY [None]
  - TRICUSPID VALVE INCOMPETENCE [None]
  - AORTIC VALVE INCOMPETENCE [None]
  - RASH [None]
  - ASTHENIA [None]
  - PALPITATIONS [None]
  - CARDIAC DISORDER [None]
  - RENAL FAILURE ACUTE [None]
  - ASTHMA [None]
  - ORTHOPNOEA [None]
  - BLOOD PRESSURE INADEQUATELY CONTROLLED [None]
  - DYSPNOEA [None]
  - CHEST DISCOMFORT [None]
  - ATRIAL FIBRILLATION [None]
  - ELECTROCARDIOGRAM T WAVE INVERSION [None]
  - PULMONARY OEDEMA [None]
  - ATELECTASIS [None]
  - WHEEZING [None]
  - NAUSEA [None]
  - VOMITING [None]
  - GENERAL PHYSICAL HEALTH DETERIORATION [None]
  - MITRAL VALVE INCOMPETENCE [None]
  - TACHYCARDIA [None]
  - CARDIAC FAILURE CONGESTIVE [None]
